FAERS Safety Report 7883158-1 (Version None)
Quarter: 2011Q4

REPORT INFORMATION
  Report Type: 
  Country: None (occurrence: None)
  Receive Date: 20111101
  Receipt Date: 20111101
  Transmission Date: 20120403
  Serious: No
  Sender: FDA-Public Use
  Company Number: None

PATIENT
  Sex: Female
  Weight: 86.9 kg

DRUGS (4)
  1. FLUOROURACIL [Suspect]
     Dosage: 4158 MG
  2. LEUCOVORIN CALCIUM [Suspect]
     Dosage: 792 MG
  3. ELOXATIN [Suspect]
     Dosage: 129 MG
  4. AVASTIN [Suspect]
     Dosage: 434 MG

REACTIONS (1)
  - TOOTH ABSCESS [None]
